FAERS Safety Report 15148534 (Version 2)
Quarter: 2018Q3

REPORT INFORMATION
  Report Type: Report from Study
  Country: IT (occurrence: IT)
  Receive Date: 20180716
  Receipt Date: 20180720
  Transmission Date: 20181010
  Serious: Yes (Other)
  Sender: FDA-Public Use
  Company Number: IT-MYLANLABS-2018M1051148

PATIENT
  Age: 26 Year
  Sex: Female

DRUGS (4)
  1. EFEXOR [Suspect]
     Active Substance: VENLAFAXINE HYDROCHLORIDE
     Indication: MAJOR DEPRESSION
     Dosage: 150 MG, TOTAL
     Route: 048
     Dates: start: 20170330, end: 20170330
  2. DELORAZEPAM [Suspect]
     Active Substance: DELORAZEPAM
     Indication: ANXIETY
     Dosage: 20 ML, TOTAL
     Route: 048
     Dates: start: 20170330, end: 20170330
  3. ARIPIPRAZOLO TEVA [Suspect]
     Active Substance: ARIPIPRAZOLE
     Indication: SCHIZOPHRENIA
     Dosage: 210 MG, TOTAL
     Dates: start: 20170330, end: 20170330
  4. DALMADORM 15 MG CAPSULE RIGIDE [Suspect]
     Active Substance: FLURAZEPAM\FLURAZEPAM HYDROCHLORIDE
     Indication: INSOMNIA
     Dosage: 30 MG, TOTAL
     Route: 048
     Dates: start: 20170330, end: 20170330

REACTIONS (3)
  - Personality disorder [Recovering/Resolving]
  - Eating disorder [Recovering/Resolving]
  - Intentional self-injury [Unknown]

NARRATIVE: CASE EVENT DATE: 20170330
